FAERS Safety Report 23226403 (Version 2)
Quarter: 2023Q4

REPORT INFORMATION
  Report Type: Spontaneous
  Country: US (occurrence: US)
  Receive Date: 20231124
  Receipt Date: 20231124
  Transmission Date: 20240110
  Serious: Yes (Other)
  Sender: FDA-Public Use
  Company Number: US-AMGEN-USASP2023208410

PATIENT
  Age: 56 Year
  Sex: Female

DRUGS (2)
  1. PROLIA [Suspect]
     Active Substance: DENOSUMAB
     Indication: Osteoporosis
     Dosage: UNK
     Route: 065
     Dates: start: 201608, end: 202108
  2. ROMOSOZUMAB [Suspect]
     Active Substance: ROMOSOZUMAB
     Indication: Prophylaxis
     Dosage: UNK
     Route: 065
     Dates: start: 202201

REACTIONS (5)
  - Thoracic vertebral fracture [Unknown]
  - C-telopeptide increased [Unknown]
  - Hypercalciuria [Unknown]
  - Product dose omission issue [Unknown]
  - Back pain [Unknown]

NARRATIVE: CASE EVENT DATE: 20200801
